FAERS Safety Report 5578066-5 (Version None)
Quarter: 2007Q4

REPORT INFORMATION
  Report Type: 
  Country: None (occurrence: None)
  Receive Date: 20071231
  Receipt Date: 20071105
  Transmission Date: 20080405
  Serious: Yes (Other)
  Sender: FDA-Public Use
  Company Number: US-PURDUE-USA_2007_0030784

PATIENT
  Sex: Male

DRUGS (1)
  1. OXYCONTIN [Suspect]
     Indication: BACK PAIN
     Dosage: UNK MG, UNK
     Route: 048
     Dates: start: 20011129, end: 20020701

REACTIONS (14)
  - ANXIETY [None]
  - CHILLS [None]
  - CONVULSION [None]
  - DEPRESSION [None]
  - DIARRHOEA [None]
  - DRUG DETOXIFICATION [None]
  - DYSKINESIA [None]
  - HYPERHIDROSIS [None]
  - HYPERTENSION [None]
  - MOOD SWINGS [None]
  - SLEEP DISORDER [None]
  - STOMACH DISCOMFORT [None]
  - SUICIDAL IDEATION [None]
  - SUICIDE ATTEMPT [None]
